FAERS Safety Report 17278819 (Version 2)
Quarter: 2020Q2

REPORT INFORMATION
  Report Type: Report from Study
  Country: IT (occurrence: IT)
  Receive Date: 20200116
  Receipt Date: 20200430
  Transmission Date: 20200713
  Serious: Yes (Hospitalization)
  Sender: FDA-Public Use
  Company Number: IT-PFIZER INC-2020015450

PATIENT
  Age: 58 Year
  Sex: Female

DRUGS (1)
  1. TAVOR (LORAZEPAM) [Suspect]
     Active Substance: LORAZEPAM
     Indication: ANXIETY
     Dosage: 125 MG, UNK
     Route: 048
     Dates: start: 20191010, end: 20191010

REACTIONS (3)
  - Drug abuse [Recovering/Resolving]
  - Overdose [Unknown]
  - Sopor [Recovering/Resolving]

NARRATIVE: CASE EVENT DATE: 20191010
